FAERS Safety Report 4976080-1 (Version None)
Quarter: 2006Q2

REPORT INFORMATION
  Report Type: 
  Country: None (occurrence: None)
  Receive Date: 20060412
  Receipt Date: 20060403
  Transmission Date: 20061013
  Serious: Yes (Hospitalization)
  Sender: FDA-Public Use
  Company Number: 2006047333

PATIENT
  Age: 65 Year
  Sex: Male

DRUGS (8)
  1. ALDACTONE [Suspect]
     Indication: ILL-DEFINED DISORDER
     Dosage: 25 MG (25 MG, DAILY), ORAL
     Route: 048
     Dates: end: 20060217
  2. POTASSIUM CHLORIDE [Suspect]
     Indication: ILL-DEFINED DISORDER
     Dosage: 1200 MG (600 MG, 2 IN 1 D), ORAL
     Route: 048
     Dates: start: 20060203, end: 20060217
  3. RAMIPRIL [Suspect]
     Indication: ILL-DEFINED DISORDER
     Dosage: 10 MG (5 MG, 2 IN 1 D), ORAL
     Route: 048
  4. BUMETANIDE [Concomitant]
  5. BISOPROLOL FUMARATE [Concomitant]
  6. CORDARONE [Concomitant]
  7. PREVISCAN (FLUINDIONE) [Concomitant]
  8. REPAGLINIDE [Concomitant]

REACTIONS (4)
  - BLOOD POTASSIUM DECREASED [None]
  - DRUG INTERACTION [None]
  - HYPERKALAEMIA [None]
  - RENAL FAILURE ACUTE [None]
